FAERS Safety Report 22298526 (Version 5)
Quarter: 2023Q2

REPORT INFORMATION
  Report Type: Report from Study
  Country: NL (occurrence: NL)
  Receive Date: 20230509
  Receipt Date: 20230526
  Transmission Date: 20230721
  Serious: Yes (Death, Life-Threatening, Hospitalization, Disabling)
  Sender: FDA-Public Use
  Company Number: NL-SA-SAC20230502000160

PATIENT
  Age: 61 Year
  Sex: Male

DRUGS (23)
  1. ISATUXIMAB [Suspect]
     Active Substance: ISATUXIMAB
     Indication: Plasma cell myeloma
     Dosage: 748 MG
     Dates: start: 20230403, end: 20230403
  2. ISATUXIMAB [Suspect]
     Active Substance: ISATUXIMAB
     Dosage: 748 MG
     Dates: start: 20210913, end: 20210913
  3. CARFILZOMIB [Suspect]
     Active Substance: CARFILZOMIB
     Indication: Plasma cell myeloma
     Dosage: 86 MG
     Dates: start: 20230417, end: 20230417
  4. CARFILZOMIB [Suspect]
     Active Substance: CARFILZOMIB
     Dosage: 86 MG
     Dates: start: 20210913, end: 20210913
  5. LENALIDOMIDE [Suspect]
     Active Substance: LENALIDOMIDE
     Indication: Plasma cell myeloma
     Dosage: 10 MG
     Dates: start: 20230424, end: 20230424
  6. LENALIDOMIDE [Suspect]
     Active Substance: LENALIDOMIDE
     Dosage: 10 MG
     Dates: start: 20210913, end: 20210913
  7. DEXAMETHASONE [Suspect]
     Active Substance: DEXAMETHASONE
     Indication: Plasma cell myeloma
     Dosage: 20 MG
     Dates: start: 20230424, end: 20230424
  8. DEXAMETHASONE [Suspect]
     Active Substance: DEXAMETHASONE
     Dosage: 20 MG
     Dates: start: 20210913, end: 20210913
  9. SIMVASTATIN [Concomitant]
     Active Substance: SIMVASTATIN
     Indication: Cerebral artery occlusion
     Dosage: UNK
     Dates: start: 20210913
  10. COTRIMOXAZOLE [Concomitant]
     Active Substance: SULFAMETHOXAZOLE\TRIMETHOPRIM
     Indication: Prophylaxis
     Dosage: UNK
     Dates: start: 20210913
  11. COTRIMOXAZOLE [Concomitant]
     Active Substance: SULFAMETHOXAZOLE\TRIMETHOPRIM
     Dosage: UNK
     Dates: start: 20230306
  12. VALACYCLOVIR HYDROCHLORIDE [Concomitant]
     Active Substance: VALACYCLOVIR HYDROCHLORIDE
     Indication: Prophylaxis
     Dosage: UNK
     Dates: start: 20210913
  13. ONDANSETRON [Concomitant]
     Active Substance: ONDANSETRON
     Indication: Nausea
     Dosage: UNK
     Dates: start: 20210927
  14. METOCLOPRAMIDE [Concomitant]
     Active Substance: METOCLOPRAMIDE
     Indication: Nausea
     Dosage: UNK
     Dates: start: 20210927
  15. CARBASPIRIN CALCIUM [Concomitant]
     Active Substance: CARBASPIRIN CALCIUM
     Indication: Prophylaxis
     Dosage: UNK
     Dates: start: 20211206
  16. MOVICOLON [Concomitant]
     Active Substance: POLYETHYLENE GLYCOL 3350\POTASSIUM CHLORIDE\SODIUM BICARBONATE\SODIUM CHLORIDE
     Indication: Prophylaxis
     Dosage: UNK
     Dates: start: 20220204
  17. HYPROMELLOSES [Concomitant]
     Active Substance: HYPROMELLOSES
     Indication: Dry eye
     Dosage: UNK
     Dates: start: 20220530, end: 20230425
  18. OMEPRAZOLE [Concomitant]
     Active Substance: OMEPRAZOLE
     Indication: Prophylaxis
     Dosage: UNK
     Dates: start: 20211101, end: 20230428
  19. CHOLESTYRAMINE [Concomitant]
     Active Substance: CHOLESTYRAMINE
     Indication: Diarrhoea
     Dosage: UNK
     Dates: start: 20230109, end: 20230425
  20. FUROSEMIDE [Concomitant]
     Active Substance: FUROSEMIDE
     Indication: Premedication
     Dosage: D1, D8, D15 OF EVERY CYCLE
     Dates: start: 20220502
  21. FUROSEMIDE [Concomitant]
     Active Substance: FUROSEMIDE
     Dosage: UNK
     Dates: start: 20210913
  22. IBUPROFEN [Concomitant]
     Active Substance: IBUPROFEN
     Indication: Back pain
     Dosage: UNK
     Dates: end: 20230427
  23. ESOMEPRAZOLE [Concomitant]
     Active Substance: ESOMEPRAZOLE
     Indication: Prophylaxis
     Dosage: UNK
     Dates: start: 20230428

REACTIONS (2)
  - Pneumonia aspiration [Not Recovered/Not Resolved]
  - Ischaemic cerebral infarction [Fatal]

NARRATIVE: CASE EVENT DATE: 20230425
